FAERS Safety Report 11456730 (Version 3)
Quarter: 2015Q3

REPORT INFORMATION
  Report Type: Report from Study
  Country: JP (occurrence: JP)
  Receive Date: 20150903
  Receipt Date: 20150930
  Transmission Date: 20151125
  Serious: Yes (Hospitalization)
  Sender: FDA-Public Use
  Company Number: JP-SHIONOGI, INC-2015000115

PATIENT
  Age: 1 Year
  Sex: Female
  Weight: 11 kg

DRUGS (6)
  1. PREDONINE [Suspect]
     Active Substance: PREDNISOLONE\PREDNISOLONE ACETATE\PREDNISOLONE SODIUM SUCCINATE
     Indication: KAWASAKI^S DISEASE
     Dosage: 21 MG, QD
     Route: 065
     Dates: start: 20141114, end: 20141120
  2. FAMOTIDINE. [Concomitant]
     Active Substance: FAMOTIDINE
     Indication: KAWASAKI^S DISEASE
     Dosage: 10 MG, QD
     Route: 065
     Dates: start: 20141114, end: 20141118
  3. ASPIRIN                            /00002701/ [Concomitant]
     Active Substance: ASPIRIN
     Indication: KAWASAKI^S DISEASE
     Dosage: 300 MG, QD
     Route: 048
     Dates: start: 20141114
  4. DORIPENEM [Suspect]
     Active Substance: DORIPENEM
     Indication: PNEUMONIA
     Dosage: 200 MG, TID
     Route: 041
     Dates: start: 20141112, end: 20141117
  5. CLARITH [Concomitant]
     Active Substance: CLARITHROMYCIN
     Indication: PNEUMONIA
     Dosage: 50 MG, BID
     Route: 048
     Dates: start: 20141107, end: 20141111
  6. VENOGLOBULIN IH [Concomitant]
     Indication: KAWASAKI^S DISEASE
     Dosage: 20 G, QD
     Route: 065
     Dates: start: 20141114, end: 20141115

REACTIONS (3)
  - Kawasaki^s disease [Recovered/Resolved]
  - White blood cell count increased [Recovered/Resolved]
  - Pharyngitis [Unknown]

NARRATIVE: CASE EVENT DATE: 20141114
